FAERS Safety Report 8812093 (Version 3)
Quarter: 2012Q4

REPORT INFORMATION
  Report Type: Report from Study
  Country: US (occurrence: US)
  Receive Date: 20120927
  Receipt Date: 20121016
  Transmission Date: 20130627
  Serious: Yes (Other)
  Sender: FDA-Public Use
  Company Number: US-JNJFOC-20120911989

PATIENT
  Age: 52 Year
  Sex: Male

DRUGS (2)
  1. USTEKINUMAB [Suspect]
     Indication: PSORIASIS
     Route: 058
     Dates: start: 201202
  2. VERAPAMIL [Concomitant]

REACTIONS (2)
  - Chest pain [Recovered/Resolved]
  - Angina unstable [Unknown]
